FAERS Safety Report 18858366 (Version 1)
Quarter: 2021Q1

REPORT INFORMATION
  Report Type: Report from Study
  Country: GR (occurrence: GR)
  Receive Date: 20210208
  Receipt Date: 20210208
  Transmission Date: 20210420
  Serious: Yes (Hospitalization)
  Sender: FDA-Public Use
  Company Number: GR-TAKEDA-2021TUS006312

PATIENT
  Sex: Male

DRUGS (2)
  1. VEDOLIZUMAB [Suspect]
     Active Substance: VEDOLIZUMAB
     Indication: INFLAMMATORY BOWEL DISEASE
     Dosage: UNK
     Route: 042
     Dates: start: 20180403
  2. GLUCOPHAGE [Concomitant]
     Active Substance: METFORMIN HYDROCHLORIDE
     Dosage: 1000 MILLIGRAM

REACTIONS (3)
  - Clostridium difficile infection [Recovered/Resolved]
  - Type 2 diabetes mellitus [Not Recovered/Not Resolved]
  - Subileus [Recovered/Resolved]

NARRATIVE: CASE EVENT DATE: 20190306
